FAERS Safety Report 18361402 (Version 1)
Quarter: 2020Q4

REPORT INFORMATION
  Report Type: Spontaneous
  Country: US (occurrence: US)
  Receive Date: 20201008
  Receipt Date: 20201008
  Transmission Date: 20210114
  Serious: No
  Sender: FDA-Public Use
  Company Number: US-GALDERMA-US2020030563

PATIENT
  Age: 53 Year
  Sex: Female

DRUGS (4)
  1. CETAPHIL GENTLE SKIN CLEANSER [Suspect]
     Active Substance: COSMETICS
     Indication: ROSACEA
     Route: 065
     Dates: start: 20200222, end: 202003
  2. MIRVASO [Suspect]
     Active Substance: BRIMONIDINE TARTRATE
     Indication: ROSACEA
     Dosage: 0.33%
     Route: 061
     Dates: start: 20200109, end: 202003
  3. CETAPHIL MOISTURIZING LOTION [Suspect]
     Active Substance: COSMETICS
     Indication: ROSACEA
     Route: 061
     Dates: start: 20200222, end: 202003
  4. MIRVASO [Suspect]
     Active Substance: BRIMONIDINE TARTRATE
     Dosage: 0.33%
     Route: 061
     Dates: start: 20200613

REACTIONS (3)
  - Seborrhoea [Recovered/Resolved]
  - Product use issue [Recovered/Resolved]
  - Therapeutic product ineffective [Unknown]

NARRATIVE: CASE EVENT DATE: 20200109
